FAERS Safety Report 5496057-X (Version None)
Quarter: 2007Q4

REPORT INFORMATION
  Report Type: 
  Country: None (occurrence: None)
  Receive Date: 20071025
  Receipt Date: 20070116
  Transmission Date: 20080405
  Serious: No
  Sender: FDA-Public Use
  Company Number: A0635867A

PATIENT
  Age: 79 Year
  Sex: Male

DRUGS (3)
  1. ADVAIR DISKUS 100/50 [Suspect]
     Dosage: 1PUFF TWICE PER DAY
     Route: 055
     Dates: start: 20061101, end: 20061201
  2. FUROSEMIDE [Concomitant]
  3. UNKNOWN MEDICATION [Concomitant]

REACTIONS (3)
  - DYSPNOEA [None]
  - LARYNGITIS [None]
  - SPEECH DISORDER [None]
